FAERS Safety Report 24041589 (Version 7)
Quarter: 2025Q2

REPORT INFORMATION
  Report Type: Report from Study
  Country: CN (occurrence: CN)
  Receive Date: 20240702
  Receipt Date: 20250611
  Transmission Date: 20250716
  Serious: Yes (Life-Threatening, Other)
  Sender: ROCHE
  Company Number: CN-ROCHE-3489251

PATIENT
  Age: 41 Year
  Sex: Male
  Weight: 61.3 kg

DRUGS (61)
  1. POLIVY [Suspect]
     Active Substance: POLATUZUMAB VEDOTIN-PIIQ
     Indication: Diffuse large B-cell lymphoma
     Route: 042
     Dates: start: 20231005
  2. RITUXIMAB [Suspect]
     Active Substance: RITUXIMAB
     Indication: Diffuse large B-cell lymphoma
     Route: 042
  3. TUCIDINOSTAT [Suspect]
     Active Substance: TUCIDINOSTAT
     Indication: Diffuse large B-cell lymphoma
     Dosage: START DATE : 25-OCT-2023
     Route: 048
     Dates: end: 20231125
  4. VENETOCLAX [Suspect]
     Active Substance: VENETOCLAX
     Indication: Diffuse large B-cell lymphoma
     Dosage: START AND DATE: 25-OCT-2025
     Route: 048
  5. CYCLOPHOSPHAMIDE [Suspect]
     Active Substance: CYCLOPHOSPHAMIDE
     Indication: Diffuse large B-cell lymphoma
     Route: 042
     Dates: start: 20231005, end: 20231007
  6. ETOPOSIDE [Suspect]
     Active Substance: ETOPOSIDE
     Indication: Diffuse large B-cell lymphoma
     Route: 042
     Dates: start: 20231005, end: 20231007
  7. CARBOPLATIN [Suspect]
     Active Substance: CARBOPLATIN
     Indication: Diffuse large B-cell lymphoma
     Route: 042
     Dates: start: 20231006, end: 20231006
  8. VITAMINS [Concomitant]
     Active Substance: VITAMINS
     Route: 042
  9. Water soluble vitamins for injection [Concomitant]
     Route: 042
  10. Human insulin inj [Concomitant]
     Route: 042
  11. Compound potassium hydrogen phosphate injection [Concomitant]
  12. LIPOSYN (R) INTRAVENOUS FAT EMULSION [Concomitant]
     Active Substance: LIPOSYN (R) INTRAVENOUS FAT EMULSION
  13. Levi (multiple trace element injection) [Concomitant]
  14. Levi (multiple trace element injection) [Concomitant]
  15. AMINO ACIDS, SOURCE UNSPECIFIED [Concomitant]
     Active Substance: AMINO ACIDS, SOURCE UNSPECIFIED
  16. MAGNESIUM SULFATE [Concomitant]
     Active Substance: MAGNESIUM SULFATE
  17. METRONIDAZOLE\SODIUM CHLORIDE [Concomitant]
     Active Substance: METRONIDAZOLE\SODIUM CHLORIDE
  18. METRONIDAZOLE\SODIUM CHLORIDE [Concomitant]
     Active Substance: METRONIDAZOLE\SODIUM CHLORIDE
  19. VANCOMYCIN HYDROCHLORIDE [Concomitant]
     Active Substance: VANCOMYCIN HYDROCHLORIDE
  20. DEXTROSE [Concomitant]
     Active Substance: DEXTROSE MONOHYDRATE
  21. Imipenem and cilastatin sodium salt injection [Concomitant]
  22. Imipenem and cilastatin sodium salt injection [Concomitant]
  23. ALPRAZOLAM [Concomitant]
     Active Substance: ALPRAZOLAM
     Indication: Sedation
  24. ALPRAZOLAM [Concomitant]
     Active Substance: ALPRAZOLAM
     Indication: Hypnotherapy
  25. 5g intravenous human immunoglobulin [Concomitant]
  26. AMINO ACIDS, SOURCE UNSPECIFIED [Concomitant]
     Active Substance: AMINO ACIDS, SOURCE UNSPECIFIED
  27. Ondansetron Hydrochloride Injection [Concomitant]
  28. Fluconazole sodium chloride injection [Concomitant]
  29. Omeprazole sodium for injection [Concomitant]
  30. METHYLPREDNISOLONE SODIUM SUCCINATE [Concomitant]
     Active Substance: METHYLPREDNISOLONE SODIUM SUCCINATE
     Route: 042
     Dates: start: 20231009, end: 20231009
  31. Indometacin suppository [Concomitant]
  32. Light liquid paraffin [Concomitant]
  33. DEXAMETHASONE SODIUM PHOSPHATE [Concomitant]
     Active Substance: DEXAMETHASONE SODIUM PHOSPHATE
  34. FENTANYL TRANSDERMAL SYSTEM [Concomitant]
     Active Substance: FENTANYL
  35. Compound acetaminophen Tablets (II) [Concomitant]
  36. Promethazine hydrochloride inj [Concomitant]
     Route: 030
     Dates: start: 20231005, end: 20231005
  37. Pethidine hydrochloride injection [Concomitant]
  38. Potassium chloride injection 10% [Concomitant]
  39. Montmorillonite powder [Concomitant]
  40. Recombinant human thrombopoietin injection [Concomitant]
  41. SODIUM CHLORIDE [Concomitant]
     Active Substance: SODIUM CHLORIDE
  42. METOCLOPRAMIDE HYDROCHLORIDE [Concomitant]
     Active Substance: METOCLOPRAMIDE HYDROCHLORIDE
  43. Levofloxacin sodium chloride injection [Concomitant]
  44. CASPOFUNGIN ACETATE [Concomitant]
     Active Substance: CASPOFUNGIN ACETATE
  45. Berberine Hydrochloride Tablets [Concomitant]
  46. morphine hydrochloride injection [Concomitant]
  47. Etamsylate Injection [Concomitant]
  48. VORICONAZOLE [Concomitant]
     Active Substance: VORICONAZOLE
  49. ESOMEPRAZOLE SODIUM [Concomitant]
     Active Substance: ESOMEPRAZOLE SODIUM
  50. Thrombin powder [Concomitant]
  51. AMIKACIN SULFATE [Concomitant]
     Active Substance: AMIKACIN SULFATE
  52. ALBUMIN HUMAN [Concomitant]
     Active Substance: ALBUMIN HUMAN
  53. Amphotericin B cholesterol sulfate complex for injection [Concomitant]
  54. Cefoperazone sodium sulbactam sodium needle [Concomitant]
  55. AMBROXOL HYDROCHLORIDE [Concomitant]
     Active Substance: AMBROXOL HYDROCHLORIDE
  56. urokinase for injection [Concomitant]
  57. MESNA [Concomitant]
     Active Substance: MESNA
  58. Linezolid and Glucose Injection [Concomitant]
  59. Compound Paracetamol Tablets [Concomitant]
  60. Tylenol (imipenem cilastatin sodium salt injection) [Concomitant]
  61. Berberino hidrochlorido [Concomitant]

REACTIONS (20)
  - Febrile infection [Recovered/Resolved]
  - Malnutrition [Not Recovered/Not Resolved]
  - Cough [Not Recovered/Not Resolved]
  - Abdominal pain [Not Recovered/Not Resolved]
  - Diarrhoea [Recovered/Resolved]
  - Hypokalaemia [Recovered/Resolved]
  - Hypophosphataemia [Recovered/Resolved]
  - Hypomagnesaemia [Recovered/Resolved]
  - Hypoproteinaemia [Recovered/Resolved]
  - Anaemia [Not Recovered/Not Resolved]
  - Hypocalcaemia [Recovered/Resolved]
  - Hepatitis B e antibody positive [Not Recovered/Not Resolved]
  - White blood cell count decreased [Recovered/Resolved]
  - Platelet count decreased [Recovered/Resolved]
  - Gamma-glutamyltransferase increased [Recovered/Resolved]
  - Blood alkaline phosphatase increased [Recovered/Resolved]
  - Intestinal obstruction [Not Recovered/Not Resolved]
  - Pneumonia pseudomonal [Not Recovered/Not Resolved]
  - Malnutrition [Recovered/Resolved]
  - Granulocyte count decreased [Recovered/Resolved]

NARRATIVE: CASE EVENT DATE: 20231006
